FAERS Safety Report 5683930-2 (Version None)
Quarter: 2008Q1

REPORT INFORMATION
  Report Type: 
  Country: None (occurrence: None)
  Receive Date: 20080328
  Receipt Date: 20080322
  Transmission Date: 20080703
  Serious: Yes (Other)
  Sender: FDA-Public Use
  Company Number: PHHY2008BR03655

PATIENT
  Age: 89 Year
  Sex: Female
  Weight: 54 kg

DRUGS (4)
  1. EXELON [Suspect]
     Dosage: 1 APPLICATION/DAY
     Route: 003
     Dates: start: 20080320
  2. OLANZAPINE [Concomitant]
     Dosage: 1/2 TABLET/DAY
     Route: 048
     Dates: start: 20080320
  3. FLUOXETINE [Concomitant]
     Dosage: 14 DROPS/DAY
     Route: 048
     Dates: start: 20080320
  4. ESOMEPRAZOLE MAGNESIUM [Concomitant]
     Dosage: 1 TABLET /DAY
     Route: 048
     Dates: start: 20080320

REACTIONS (2)
  - DYSKINESIA [None]
  - POSTURE ABNORMAL [None]
